FAERS Safety Report 11558582 (Version 1)
Quarter: 2015Q3

REPORT INFORMATION
  Report Type: Other
  Country: GB (occurrence: GB)
  Receive Date: 20150928
  Receipt Date: 20150928
  Transmission Date: 20151125
  Serious: Yes (Other)
  Sender: FDA-Public Use
  Company Number: GB-SUN PHARMACEUTICAL INDUSTRIES LTD-2012SUN00178

PATIENT
  Age: 64 Year
  Sex: Male

DRUGS (3)
  1. BACLOFEN. [Suspect]
     Active Substance: BACLOFEN
     Indication: MUSCLE SPASMS
  2. COCODAMOL [Concomitant]
     Active Substance: ACETAMINOPHEN\CODEINE PHOSPHATE
     Indication: PAIN
  3. BACLOFEN. [Suspect]
     Active Substance: BACLOFEN
     Indication: PAIN
     Dosage: UNK
     Route: 037

REACTIONS (7)
  - Muscle tightness [Unknown]
  - Pain [Unknown]
  - Hyperhidrosis [Unknown]
  - Headache [Unknown]
  - Drug ineffective [Unknown]
  - Muscle spasms [Unknown]
  - Gait disturbance [Unknown]
